FAERS Safety Report 4297456-4 (Version None)
Quarter: 2004Q1

REPORT INFORMATION
  Report Type: 
  Country: None (occurrence: None)
  Receive Date: 20040213
  Receipt Date: 20040203
  Transmission Date: 20041129
  Serious: Yes (Hospitalization)
  Sender: FDA-Public Use
  Company Number: 04P-163-0249220-00

PATIENT
  Age: 56 Year
  Sex: Male
  Weight: 79.3795 kg

DRUGS (9)
  1. HYTRIN [Suspect]
     Indication: PROSTATIC DISORDER
     Dosage: SEE IMAGE
     Route: 048
     Dates: start: 19850101, end: 19980101
  2. HYTRIN [Suspect]
     Indication: PROSTATIC DISORDER
     Dosage: SEE IMAGE
     Route: 048
     Dates: start: 19980101
  3. TOPROL-XL [Concomitant]
  4. PANTOPRAZOLE [Concomitant]
  5. FINASTERIDE [Concomitant]
  6. LORATADINE [Concomitant]
  7. ZAFIRLUKAST [Concomitant]
  8. PIROXICAM [Concomitant]
  9. TOCOPHEROL CONCENTRATE CAP [Concomitant]

REACTIONS (3)
  - LOWER GASTROINTESTINAL HAEMORRHAGE [None]
  - POST PROCEDURAL HAEMORRHAGE [None]
  - UPPER GASTROINTESTINAL HAEMORRHAGE [None]
